FAERS Safety Report 6598707-3 (Version None)
Quarter: 2010Q1

REPORT INFORMATION
  Report Type: 
  Country: None (occurrence: None)
  Receive Date: 20100224
  Receipt Date: 20100105
  Transmission Date: 20100710
  Serious: Yes (Death)
  Sender: FDA-Public Use
  Company Number: US-TYCO HEALTHCARE/MALLINCKRODT-T201000454

PATIENT
  Age: 56 Year
  Sex: Male

DRUGS (13)
  1. OXYCODONE [Suspect]
     Route: 048
  2. METHYLIN [Suspect]
     Route: 048
  3. PHENYTOIN [Suspect]
     Route: 048
  4. PHENOBARBITAL [Suspect]
     Route: 048
  5. QUETIAPINE [Suspect]
     Route: 048
  6. TRAZODONE [Suspect]
     Route: 048
  7. ESCITALOPRAM [Suspect]
     Route: 048
  8. EMTRICITABINE AND TENOFOVIR DISOPROXIL FUMARATE [Suspect]
     Route: 048
  9. METFORMIN HCL [Suspect]
     Route: 048
  10. ZOLPIDEM [Suspect]
     Route: 048
  11. ONDANSETRON [Suspect]
     Route: 048
  12. PREGABALIN [Suspect]
     Route: 048
  13. METOCLOPRAMIDE HYDROCHLORIDE [Suspect]
     Route: 048

REACTIONS (1)
  - COMPLETED SUICIDE [None]
